FAERS Safety Report 6059061-9 (Version None)
Quarter: 2009Q1

REPORT INFORMATION
  Report Type: 
  Country: None (occurrence: None)
  Receive Date: 20090130
  Receipt Date: 20090119
  Transmission Date: 20090719
  Serious: Yes (Death)
  Sender: FDA-Public Use
  Company Number: B0555125A

PATIENT
  Age: 88 Year
  Sex: Male

DRUGS (17)
  1. AMOXICILLIN AND CLAVULANATE POTASSIUM [Suspect]
     Indication: DRUG USE FOR UNKNOWN INDICATION
     Route: 065
     Dates: start: 20080529, end: 20080621
  2. ABILIFY [Suspect]
     Indication: DRUG USE FOR UNKNOWN INDICATION
     Route: 048
     Dates: start: 20080603, end: 20080707
  3. PYOSTACINE [Suspect]
     Indication: DRUG USE FOR UNKNOWN INDICATION
     Route: 065
     Dates: start: 20080621, end: 20080707
  4. OFLOXACIN [Suspect]
     Indication: DRUG USE FOR UNKNOWN INDICATION
     Route: 065
     Dates: start: 20080621, end: 20080707
  5. LYRICA [Suspect]
     Indication: DRUG USE FOR UNKNOWN INDICATION
     Route: 065
     Dates: start: 20080602, end: 20080709
  6. IODINATED CONTRAST MEDIUM [Suspect]
     Indication: ARTERIOGRAM
     Route: 065
     Dates: start: 20080618, end: 20080618
  7. LASILIX [Concomitant]
     Route: 065
  8. COVERSYL [Concomitant]
     Route: 065
  9. PRAXILENE [Concomitant]
     Route: 065
  10. EXELON [Concomitant]
     Route: 065
  11. IXEL [Concomitant]
     Route: 065
  12. LANTUS [Concomitant]
     Route: 065
  13. COUMADIN [Concomitant]
     Route: 065
     Dates: start: 20080101
  14. TEMESTA [Concomitant]
     Dosage: 3MG PER DAY
  15. SKENAN [Concomitant]
     Dates: end: 20080621
  16. OXYCONTIN [Concomitant]
  17. OXYNORM [Concomitant]

REACTIONS (12)
  - BLOOD CREATININE INCREASED [None]
  - C-REACTIVE PROTEIN INCREASED [None]
  - DRUG RASH WITH EOSINOPHILIA AND SYSTEMIC SYMPTOMS [None]
  - FACE OEDEMA [None]
  - HYPERTHERMIA [None]
  - OEDEMA PERIPHERAL [None]
  - PRURITUS [None]
  - RASH [None]
  - RASH PUSTULAR [None]
  - RENAL FAILURE ACUTE [None]
  - THROMBOCYTOPENIA [None]
  - TONGUE OEDEMA [None]
